FAERS Safety Report 6061050-5 (Version None)
Quarter: 2009Q1

REPORT INFORMATION
  Report Type: 
  Country: None (occurrence: None)
  Receive Date: 20090202
  Receipt Date: 20090126
  Transmission Date: 20090719
  Serious: Yes (Hospitalization, Other)
  Sender: FDA-Public Use
  Company Number: US-BAYER-200911887NA

PATIENT
  Age: 49 Year
  Sex: Female

DRUGS (7)
  1. SORAFENIB [Suspect]
     Indication: METASTATIC RENAL CELL CARCINOMA
     Dosage: TOTAL DAILY DOSE: 800 MG  UNIT DOSE: 200 MG
     Route: 048
     Dates: start: 20090108, end: 20090108
  2. FENTANYL-75 [Concomitant]
     Route: 048
     Dates: start: 20080508
  3. SENNA [Concomitant]
     Route: 048
     Dates: start: 20081002
  4. COLACE [Concomitant]
     Route: 048
     Dates: start: 20080731
  5. OXYCODONE HCL [Concomitant]
     Route: 048
     Dates: start: 20080419
  6. LORAZEPAM [Concomitant]
     Route: 048
     Dates: start: 20081222
  7. SYNTHROID [Concomitant]
     Route: 048
     Dates: start: 20081211

REACTIONS (7)
  - ABDOMINAL PAIN [None]
  - DEHYDRATION [None]
  - DIARRHOEA [None]
  - ENTEROCOLITIS [None]
  - HYPOTENSION [None]
  - PRESYNCOPE [None]
  - RETCHING [None]
